FAERS Safety Report 8861595 (Version 1)
Quarter: 2012Q4

REPORT INFORMATION
  Report Type: Spontaneous
  Country: US (occurrence: None)
  Receive Date: 20121025
  Receipt Date: 20121025
  Transmission Date: 20130627
  Serious: Yes (Hospitalization)
  Sender: FDA-Public Use
  Company Number: None

PATIENT
  Age: 65 Year
  Sex: Female

DRUGS (1)
  1. HYDROMORPHONE [Suspect]
     Dosage: 2 MG IV X 1
     Route: 042
     Dates: start: 20120411, end: 20120411

REACTIONS (2)
  - Oxygen saturation decreased [None]
  - Somnolence [None]
